FAERS Safety Report 9024482 (Version 1)
Quarter: 2013Q1

REPORT INFORMATION
  Report Type: Spontaneous
  Country: FR (occurrence: FR)
  Receive Date: 20130121
  Receipt Date: 20130121
  Transmission Date: 20140127
  Serious: Yes (Hospitalization)
  Sender: FDA-Public Use
  Company Number: FR-JNJFOC-20130109276

PATIENT
  Age: 56 None
  Sex: Female

DRUGS (3)
  1. IXPRIM [Suspect]
     Indication: PAIN
     Route: 048
     Dates: start: 20120115, end: 20120117
  2. CEBUTID [Suspect]
     Indication: PAIN
     Route: 048
     Dates: start: 20120115, end: 20120117
  3. ABUFENE [Concomitant]
     Indication: PRODUCT USED FOR UNKNOWN INDICATION
     Route: 048

REACTIONS (1)
  - Anaphylactic shock [Recovered/Resolved]
